FAERS Safety Report 23379632 (Version 2)
Quarter: 2024Q1

REPORT INFORMATION
  Report Type: Spontaneous
  Country: IT (occurrence: IT)
  Receive Date: 20240108
  Receipt Date: 20240122
  Transmission Date: 20240410
  Serious: No
  Sender: FDA-Public Use
  Company Number: None

PATIENT
  Age: 89 Year
  Sex: Female
  Weight: 68 kg

DRUGS (1)
  1. RANEXA [Suspect]
     Active Substance: RANOLAZINE
     Indication: Angina pectoris
     Dosage: 750 MG, QD
     Route: 048
     Dates: start: 20230810, end: 20230812

REACTIONS (2)
  - Confusional state [Recovered/Resolved]
  - Posture abnormal [Recovered/Resolved]

NARRATIVE: CASE EVENT DATE: 20230810
